FAERS Safety Report 9225247 (Version 1)
Quarter: 2013Q2

REPORT INFORMATION
  Report Type: Spontaneous
  Country: US (occurrence: None)
  Receive Date: 20130410
  Receipt Date: 20130410
  Transmission Date: 20140414
  Serious: No
  Sender: FDA-Public Use
  Company Number: None

PATIENT
  Sex: Male
  Weight: 121.3 kg

DRUGS (1)
  1. ACYCLOVIR [Suspect]

REACTIONS (1)
  - Drug effect decreased [None]
